FAERS Safety Report 7065089-2 (Version None)
Quarter: 2010Q4

REPORT INFORMATION
  Report Type: 
  Country: None (occurrence: None)
  Receive Date: 20101022
  Receipt Date: 20101022
  Transmission Date: 20110411
  Serious: No
  Sender: FDA-Public Use
  Company Number: None

PATIENT
  Sex: Female
  Weight: 88.905 kg

DRUGS (2)
  1. LUMIGAN [Suspect]
     Indication: GLAUCOMA
     Dosage: 1 DROP 1 TIMES A DAY EYE
     Route: 048
     Dates: start: 19960101
  2. TIMOLOL [Suspect]
     Indication: GLAUCOMA
     Dosage: 1 DROP 2 TIMES DAILY EYE
     Route: 048

REACTIONS (3)
  - CORNEAL DYSTROPHY [None]
  - EYE DISORDER [None]
  - SCLERAL DISCOLOURATION [None]
